FAERS Safety Report 7477201-1 (Version None)
Quarter: 2011Q2

REPORT INFORMATION
  Report Type: 
  Country: None (occurrence: None)
  Receive Date: 20110512
  Receipt Date: 20110310
  Transmission Date: 20111010
  Serious: No
  Sender: FDA-Public Use
  Company Number: US-NOVEN-11US001972

PATIENT
  Sex: Male

DRUGS (4)
  1. DAYTRANA [Suspect]
     Dosage: 15 MG, QD
     Route: 062
     Dates: start: 20110101
  2. DAYTRANA [Suspect]
     Indication: ATTENTION DEFICIT/HYPERACTIVITY DISORDER
     Dosage: 20 MG, QD
     Route: 062
     Dates: start: 20110101
  3. DAYTRANA [Suspect]
     Dosage: 25 MG, QD
     Route: 062
     Dates: start: 20110301
  4. DAYTRANA [Suspect]
     Dosage: UNK
     Route: 062
     Dates: start: 20050101

REACTIONS (4)
  - DISTURBANCE IN ATTENTION [None]
  - DRUG PRESCRIBING ERROR [None]
  - WRONG TECHNIQUE IN DRUG USAGE PROCESS [None]
  - DRUG INEFFECTIVE [None]
